FAERS Safety Report 7164266-X (Version None)
Quarter: 2010Q4

REPORT INFORMATION
  Report Type: 
  Country: None (occurrence: None)
  Receive Date: 20101215
  Receipt Date: 20101206
  Transmission Date: 20110411
  Serious: Yes (Hospitalization)
  Sender: FDA-Public Use
  Company Number: TW-WATSON-2010-15805

PATIENT
  Age: 46 Year
  Sex: Female

DRUGS (1)
  1. ORPHENADRINE CITRATE (WATSON LABORATORIES) [Suspect]
     Indication: SUICIDE ATTEMPT
     Dosage: 4000 MG, SINGLE (40 TABLETS OF 100 MG)
     Route: 048

REACTIONS (10)
  - CONVULSION [None]
  - DRY SKIN [None]
  - FLUSHING [None]
  - JOINT DISLOCATION [None]
  - NAUSEA [None]
  - OVERDOSE [None]
  - RADICULOPATHY [None]
  - RHABDOMYOLYSIS [None]
  - STUPOR [None]
  - SUICIDE ATTEMPT [None]
